FAERS Safety Report 10896448 (Version 2)
Quarter: 2015Q2

REPORT INFORMATION
  Report Type: Spontaneous
  Country: ES (occurrence: ES)
  Receive Date: 20150309
  Receipt Date: 20150604
  Transmission Date: 20150821
  Serious: Yes (Other)
  Sender: FDA-Public Use
  Company Number: ES-THROMBOGENICS NV-SPO-2015-1749

PATIENT
  Age: 42 Year
  Sex: Female

DRUGS (1)
  1. JETREA [Suspect]
     Active Substance: OCRIPLASMIN
     Indication: MACULAR HOLE
     Dosage: 0.125 MG, ONE TIME DOSE
     Route: 031
     Dates: start: 20141218, end: 20141218

REACTIONS (12)
  - Retinal exudates [Unknown]
  - Disease progression [Unknown]
  - Macular hole [Not Recovered/Not Resolved]
  - Retinal injury [Unknown]
  - Subretinal fluid [Recovered/Resolved]
  - Visual acuity reduced [Unknown]
  - Diplopia [Unknown]
  - Retinal detachment [Recovered/Resolved]
  - Visual field defect [Unknown]
  - Metamorphopsia [Unknown]
  - Off label use [Unknown]
  - Vision blurred [Unknown]

NARRATIVE: CASE EVENT DATE: 20141229
